FAERS Safety Report 14700360 (Version 1)
Quarter: 2018Q1

REPORT INFORMATION
  Report Type: Spontaneous
  Country: US (occurrence: US)
  Receive Date: 20180330
  Receipt Date: 20180330
  Transmission Date: 20180509
  Serious: No
  Sender: FDA-Public Use
  Company Number: None

PATIENT
  Age: 66 Year
  Sex: Female
  Weight: 40.82 kg

DRUGS (7)
  1. ZOLMITRIPTAN. [Concomitant]
     Active Substance: ZOLMITRIPTAN
  2. GABAPENTIN. [Concomitant]
     Active Substance: GABAPENTIN
  3. LEVAQUIN [Suspect]
     Active Substance: LEVOFLOXACIN
     Route: 048
     Dates: start: 20180203, end: 20180222
  4. ALREX [Concomitant]
     Active Substance: LOTEPREDNOL ETABONATE
  5. TRAMAZEPAM [Concomitant]
  6. VENTALIN [Concomitant]
  7. ONDANSETRON [Concomitant]
     Active Substance: ONDANSETRON

REACTIONS (7)
  - Pain in extremity [None]
  - Insomnia [None]
  - Tendon rupture [None]
  - Headache [None]
  - Skin exfoliation [None]
  - Gait disturbance [None]
  - Peripheral swelling [None]

NARRATIVE: CASE EVENT DATE: 20180215
